FAERS Safety Report 5130699-6 (Version None)
Quarter: 2006Q4

REPORT INFORMATION
  Report Type: 
  Country: None (occurrence: None)
  Receive Date: 20061019
  Receipt Date: 20061005
  Transmission Date: 20070319
  Serious: Yes (Other)
  Sender: FDA-Public Use
  Company Number: GB-JNJFOC-20060905521

PATIENT
  Sex: Female

DRUGS (1)
  1. REMICADE [Suspect]
     Indication: CROHN'S DISEASE
     Dosage: INFUSION GIVEN OVER ^2^ UNSPECIFIED UNITS OF TIME
     Route: 042

REACTIONS (2)
  - ASTHMA [None]
  - INFUSION RELATED REACTION [None]
